FAERS Safety Report 13943096 (Version 1)
Quarter: 2017Q3

REPORT INFORMATION
  Report Type: Spontaneous
  Country: US (occurrence: US)
  Receive Date: 20170907
  Receipt Date: 20170907
  Transmission Date: 20171128
  Serious: Yes (Life-Threatening, Hospitalization, Other)
  Sender: FDA-Public Use
  Company Number: US-MYLANLABS-2017M1055118

PATIENT
  Age: 80 Year
  Sex: Male

DRUGS (1)
  1. PHENYTOIN. [Suspect]
     Active Substance: PHENYTOIN
     Indication: SEIZURE
     Route: 065

REACTIONS (5)
  - Factor VIII deficiency [Recovering/Resolving]
  - Pemphigoid [Recovering/Resolving]
  - Haemorrhage [Recovered/Resolved]
  - Haemoptysis [Recovering/Resolving]
  - Respiratory failure [Unknown]
